FAERS Safety Report 11681884 (Version 1)
Quarter: 2015Q4

REPORT INFORMATION
  Report Type: Spontaneous
  Country: US (occurrence: None)
  Receive Date: 20151028
  Receipt Date: 20151028
  Transmission Date: 20160304
  Serious: Yes (Other)
  Sender: FDA-Public Use
  Company Number: None

PATIENT
  Age: 69 Year
  Sex: Female
  Weight: 68.04 kg

DRUGS (4)
  1. AMLODIPINE BESYLATE. [Suspect]
     Active Substance: AMLODIPINE BESYLATE
     Indication: HYPERTENSION
     Route: 048
     Dates: start: 20151020, end: 20151022
  2. DOXYCYLINE [Concomitant]
     Active Substance: DOXYCYCLINE
  3. ALTERNATE ONE-A-DAY WOMEN^S FORMULA WITH CENTRUM SILVER (UNISEX FORMULA) [Concomitant]
  4. RAMIPRIL. [Concomitant]
     Active Substance: RAMIPRIL

REACTIONS (4)
  - Eructation [None]
  - Product substitution issue [None]
  - Product taste abnormal [None]
  - Drug ineffective [None]

NARRATIVE: CASE EVENT DATE: 20151023
